FAERS Safety Report 4378024-2 (Version None)
Quarter: 2004Q2

REPORT INFORMATION
  Report Type: 
  Country: None (occurrence: None)
  Receive Date: 20040615
  Receipt Date: 20040615
  Transmission Date: 20050107
  Serious: Yes (Death)
  Sender: FDA-Public Use
  Company Number: None

PATIENT
  Age: 72 Year
  Sex: Female
  Weight: 48.2 kg

DRUGS (4)
  1. DOCETAXEL [Suspect]
     Indication: LUNG ADENOCARCINOMA STAGE IV
     Dosage: 113 MG Q 21 DAY  IV
     Route: 042
     Dates: start: 20040402, end: 20040513
  2. IRESSA [Suspect]
     Indication: LUNG ADENOCARCINOMA STAGE IV
     Dosage: 250 MG Q DAY ORAL
     Route: 048
     Dates: start: 20040402, end: 20040518
  3. MORPHINE [Concomitant]
  4. OXYGEN [Concomitant]

REACTIONS (1)
  - HOSPITALISATION [None]
